FAERS Safety Report 4399921-8 (Version None)
Quarter: 2004Q3

REPORT INFORMATION
  Report Type: 
  Country: None (occurrence: None)
  Receive Date: 20040716
  Receipt Date: 20040625
  Transmission Date: 20050211
  Serious: Yes (Hospitalization)
  Sender: FDA-Public Use
  Company Number: JP_040603606

PATIENT
  Age: 72 Year
  Sex: Female
  Weight: 58 kg

DRUGS (5)
  1. ZYPREXA [Suspect]
     Indication: SCHIZOPHRENIA, UNDIFFERENTIATED TYPE
     Dosage: 5 MG /1 DAY
     Dates: start: 20030327, end: 20040301
  2. DILTIAZEM HCL [Concomitant]
  3. CYTOKARMA (CYTOCHROME C) [Concomitant]
  4. CYSTANIN (L-CYSTEINE ETHYL ESTER, HYDROCHLORIDE) [Concomitant]
  5. MONILAC (LACTULOSE) [Concomitant]

REACTIONS (2)
  - ANAEMIA [None]
  - OESOPHAGEAL VARICES HAEMORRHAGE [None]
